FAERS Safety Report 9640466 (Version 1)
Quarter: 2013Q4

REPORT INFORMATION
  Report Type: Spontaneous
  Country: US (occurrence: None)
  Receive Date: 20131022
  Receipt Date: 20131022
  Transmission Date: 20140711
  Serious: Yes (Disabling)
  Sender: FDA-Public Use
  Company Number: None

PATIENT
  Age: 66 Year
  Sex: Female

DRUGS (12)
  1. FEMARA [Suspect]
     Indication: BREAST CANCER
     Route: 048
     Dates: start: 20110701, end: 20111008
  2. FEMARA [Suspect]
     Indication: PROPHYLAXIS
     Route: 048
     Dates: start: 20110701, end: 20111008
  3. OMEPRAZOLE [Concomitant]
  4. FISH OIL [Concomitant]
  5. BLACK CO HOSH [Concomitant]
  6. VIT D [Concomitant]
  7. VITAMIN C [Concomitant]
  8. CRANBERRY PILLS [Concomitant]
  9. CALCIUM [Concomitant]
  10. FLAXSEED [Concomitant]
  11. ST. JOHNS WART [Concomitant]
  12. B COMPLEX [Concomitant]

REACTIONS (2)
  - Arthralgia [None]
  - Gait disturbance [None]
